FAERS Safety Report 15968464 (Version 2)
Quarter: 2019Q1

REPORT INFORMATION
  Report Type: Report from Study
  Country: IN (occurrence: IN)
  Receive Date: 20190215
  Receipt Date: 20190312
  Transmission Date: 20190418
  Serious: Yes (Death)
  Sender: FDA-Public Use
  Company Number: IN-ALLERGAN-1906436US

PATIENT
  Sex: Female

DRUGS (1)
  1. BIMATOPROST 0.3MG/ML;TIMOLOL 5MG/ML SOL MD (9374X) [Suspect]
     Active Substance: BIMATOPROST\TIMOLOL MALEATE
     Indication: GLAUCOMA
     Dosage: UNK
     Route: 047
     Dates: start: 201511, end: 201809

REACTIONS (1)
  - Death [Fatal]
